FAERS Safety Report 6252062-7 (Version None)
Quarter: 2009Q2

REPORT INFORMATION
  Report Type: 
  Country: None (occurrence: None)
  Receive Date: 20090630
  Receipt Date: 20060913
  Transmission Date: 20091009
  Serious: Yes (Hospitalization)
  Sender: FDA-Public Use
  Company Number: US-ROCHE-638708

PATIENT
  Sex: Male

DRUGS (9)
  1. ENFUVIRTIDE [Suspect]
     Route: 065
     Dates: start: 20041112, end: 20061025
  2. REYATAZ [Concomitant]
     Dates: start: 20021219, end: 20050926
  3. KALETRA [Concomitant]
     Dosage: DOSE REPORTED AS 3 TABS.
     Dates: start: 20040302, end: 20061025
  4. KALETRA [Concomitant]
     Dosage: DOSE: 2 TABS.
     Dates: start: 20060922, end: 20061025
  5. TRUVADA [Concomitant]
     Dosage: TDD: 1 TAB.
     Dates: start: 20041112, end: 20050926
  6. PREZISTA [Concomitant]
     Dates: start: 20060922, end: 20070508
  7. BACTRIM DS [Concomitant]
     Dosage: DOSE: 1 TAB
     Dates: start: 20040106, end: 20051201
  8. ZITHROMAX [Concomitant]
     Dates: start: 20050201, end: 20050208
  9. DAPSONE [Concomitant]
     Dates: start: 20060913, end: 20070508

REACTIONS (3)
  - ALCOHOL WITHDRAWAL SYNDROME [None]
  - HIV INFECTION [None]
  - PERIRECTAL ABSCESS [None]
